FAERS Safety Report 21944936 (Version 1)
Quarter: 2023Q1

REPORT INFORMATION
  Report Type: Spontaneous
  Country: US (occurrence: None)
  Receive Date: 20230202
  Receipt Date: 20230202
  Transmission Date: 20230418
  Serious: Yes (Hospitalization, Other)
  Sender: FDA-Public Use
  Company Number: 2023A025429

PATIENT
  Age: 79 Year
  Sex: Male
  Weight: 77.1 kg

DRUGS (6)
  1. LYNPARZA [Suspect]
     Active Substance: OLAPARIB
     Indication: Product used for unknown indication
     Route: 048
     Dates: start: 202210, end: 202210
  2. XTANDI [Suspect]
     Active Substance: ENZALUTAMIDE
     Indication: Prostate cancer
     Route: 048
     Dates: start: 20210412
  3. XTANDI [Suspect]
     Active Substance: ENZALUTAMIDE
     Indication: Prostate cancer
     Dosage: UNKNOWN
     Route: 048
     Dates: start: 20221012
  4. ARANESP [Concomitant]
     Active Substance: DARBEPOETIN ALFA
  5. XGEVA [Concomitant]
     Active Substance: DENOSUMAB
  6. VITAMINS [Concomitant]
     Active Substance: VITAMINS

REACTIONS (4)
  - Interstitial lung disease [Not Recovered/Not Resolved]
  - Deep vein thrombosis [Recovering/Resolving]
  - Myelosuppression [Unknown]
  - Malaise [Unknown]
